FAERS Safety Report 5524332-9 (Version None)
Quarter: 2007Q4

REPORT INFORMATION
  Report Type: 
  Country: None (occurrence: None)
  Receive Date: 20071121
  Receipt Date: 20071113
  Transmission Date: 20080405
  Serious: Yes (Other)
  Sender: FDA-Public Use
  Company Number: US-PFIZER INC-2007095733

PATIENT
  Sex: Female
  Weight: 61.363 kg

DRUGS (3)
  1. NEURONTIN [Suspect]
     Indication: PAIN
     Route: 048
  2. NEURONTIN [Suspect]
     Indication: FIBROMYALGIA
  3. VERAPAMIL [Concomitant]
     Route: 048

REACTIONS (3)
  - PAIN [None]
  - ROAD TRAFFIC ACCIDENT [None]
  - UNEVALUABLE EVENT [None]
